FAERS Safety Report 6039538-2 (Version None)
Quarter: 2009Q1

REPORT INFORMATION
  Report Type: 
  Country: None (occurrence: None)
  Receive Date: 20090116
  Receipt Date: 20090108
  Transmission Date: 20090719
  Serious: Yes (Other)
  Sender: FDA-Public Use
  Company Number: US-JNJFOC-20090101944

PATIENT
  Age: 76 Year
  Sex: Female
  Weight: 83.92 kg

DRUGS (7)
  1. EXTRA STRENGTH TYLENOL [Suspect]
     Route: 048
  2. EXTRA STRENGTH TYLENOL [Suspect]
     Indication: PROCEDURAL PAIN
     Route: 048
  3. LISINOPRIL [Concomitant]
     Indication: HYPERTENSION
  4. DIOVAN [Concomitant]
  5. DIOVAN [Concomitant]
     Indication: HYPERTENSION
  6. SYNTHROID [Concomitant]
     Indication: HYPOTHYROIDISM
  7. MULTI-VITAMINS [Concomitant]
     Indication: MEDICAL DIET

REACTIONS (1)
  - BLOOD PRESSURE INCREASED [None]
